FAERS Safety Report 5977905-3 (Version None)
Quarter: 2008Q4

REPORT INFORMATION
  Report Type: 
  Country: None (occurrence: None)
  Receive Date: 20081203
  Receipt Date: 20081127
  Transmission Date: 20090506
  Serious: Yes (Life-Threatening)
  Sender: FDA-Public Use
  Company Number: JP-BAYER-200812619BYL

PATIENT
  Age: 79 Year
  Sex: Male
  Weight: 62 kg

DRUGS (8)
  1. ASPIRIN [Suspect]
     Indication: DRUG USE FOR UNKNOWN INDICATION
     Dosage: TOTAL DAILY DOSE: 100 MG  UNIT DOSE: 100 MG
     Route: 048
     Dates: end: 20080526
  2. NORSHIN [Suspect]
     Indication: HEADACHE
     Route: 048
     Dates: start: 20080522, end: 20080522
  3. BUFFERIN A [Suspect]
     Indication: PYREXIA
     Route: 048
     Dates: start: 20080523, end: 20080524
  4. EUGLUCON [Suspect]
     Indication: DIABETES MELLITUS
     Dosage: AS USED: 5-0-2.5 MG  UNIT DOSE: 2.5 MG
     Route: 048
     Dates: end: 20080526
  5. BASEN [Suspect]
     Indication: DIABETES MELLITUS
     Dosage: TOTAL DAILY DOSE: 0.9 MG  UNIT DOSE: 0.3 MG
     Route: 048
     Dates: end: 20080526
  6. HALFDIGOXIN [Suspect]
     Indication: DRUG USE FOR UNKNOWN INDICATION
     Dosage: TOTAL DAILY DOSE: 0.125 MG  UNIT DOSE: 0.125 MG
     Route: 048
     Dates: end: 20080526
  7. QUINAPRIL HCL [Concomitant]
     Indication: HYPERTENSION
     Dosage: TOTAL DAILY DOSE: 20 MG  UNIT DOSE: 10 MG
     Route: 048
  8. AMLODIN OD [Concomitant]
     Indication: HYPERTENSION
     Dosage: TOTAL DAILY DOSE: 5 MG  UNIT DOSE: 5 MG
     Route: 048

REACTIONS (1)
  - TOXIC EPIDERMAL NECROLYSIS [None]
